FAERS Safety Report 16471343 (Version 1)
Quarter: 2019Q2

REPORT INFORMATION
  Report Type: Spontaneous
  Country: US (occurrence: US)
  Receive Date: 20190624
  Receipt Date: 20190624
  Transmission Date: 20190711
  Serious: No
  Sender: FDA-Public Use
  Company Number: US-BAUSCH-BL-2019-016397

PATIENT
  Age: 83 Year
  Sex: Female
  Weight: 51.3 kg

DRUGS (4)
  1. PREDNISOLONE SODIUM PHOSPHATE OPHTHALMIC SOLUTION USP 1% [Suspect]
     Active Substance: PREDNISOLONE SODIUM PHOSPHATE
     Indication: BLEPHARITIS
     Route: 065
  2. ESTRACE [Concomitant]
     Active Substance: ESTRADIOL
     Indication: PRODUCT USED FOR UNKNOWN INDICATION
  3. PREDNISOLONE SODIUM PHOSPHATE OPHTHALMIC SOLUTION USP 1% [Suspect]
     Active Substance: PREDNISOLONE SODIUM PHOSPHATE
     Indication: PRODUCT USE IN UNAPPROVED INDICATION
     Route: 065
     Dates: start: 2019
  4. VITAMIN D [Concomitant]
     Active Substance: VITAMIN D NOS
     Indication: PRODUCT USED FOR UNKNOWN INDICATION

REACTIONS (2)
  - Drug ineffective for unapproved indication [Unknown]
  - Product use in unapproved indication [Unknown]

NARRATIVE: CASE EVENT DATE: 2019
